FAERS Safety Report 14367548 (Version 1)
Quarter: 2018Q1

REPORT INFORMATION
  Report Type: Spontaneous
  Country: US (occurrence: US)
  Receive Date: 20180108
  Receipt Date: 20180108
  Transmission Date: 20180509
  Serious: Yes (Death)
  Sender: FDA-Public Use
  Company Number: None

PATIENT
  Age: 76 Year
  Sex: Male

DRUGS (1)
  1. ZYVOX [Suspect]
     Active Substance: LINEZOLID
     Indication: LOCALISED INFECTION
     Route: 042
     Dates: start: 20171128, end: 20171207

REACTIONS (2)
  - Confusional state [None]
  - Hyperhidrosis [None]

NARRATIVE: CASE EVENT DATE: 20171128
